FAERS Safety Report 9486027 (Version 1)
Quarter: 2013Q3

REPORT INFORMATION
  Report Type: Spontaneous
  Country: US (occurrence: US)
  Receive Date: 20130829
  Receipt Date: 20130829
  Transmission Date: 20140515
  Serious: Yes (Other)
  Sender: FDA-Public Use
  Company Number: US-JNJFOC-20130811256

PATIENT
  Age: 75 Year
  Sex: Male

DRUGS (7)
  1. STELARA [Suspect]
     Indication: PSORIASIS
     Route: 058
     Dates: end: 20130716
  2. CYCLOSPORINE [Concomitant]
     Route: 065
  3. FLUOCINONIDE [Concomitant]
     Route: 065
  4. CLOBEX [Concomitant]
     Route: 065
  5. HYDRAZIDE [Concomitant]
     Route: 065
  6. BENAZEPRIL [Concomitant]
     Route: 065
  7. MULTIVITAMINES [Concomitant]
     Route: 065

REACTIONS (1)
  - Myocardial infarction [Unknown]
